FAERS Safety Report 8449977-8 (Version None)
Quarter: 2012Q2

REPORT INFORMATION
  Report Type: 
  Country: None (occurrence: None)
  Receive Date: 20120620
  Receipt Date: 20120618
  Transmission Date: 20120825
  Serious: Yes (Other)
  Sender: FDA-Public Use
  Company Number: PHHY2012GR046407

PATIENT
  Age: 72 Year
  Sex: Female

DRUGS (4)
  1. AFLEN [Concomitant]
     Indication: TRANSIENT ISCHAEMIC ATTACK
     Dosage: 2 DF, QD
  2. REQUIP [Concomitant]
     Dosage: 4 MG, UNK
  3. STALEVO 100 [Suspect]
     Indication: PARKINSON'S DISEASE
     Dosage: 50 MG, UNK
     Dates: start: 20120529
  4. NEURONTIN [Concomitant]
     Indication: NEUROPATHY PERIPHERAL
     Dosage: 300 MG, TID

REACTIONS (7)
  - GRAND MAL CONVULSION [None]
  - ABDOMINAL DISCOMFORT [None]
  - NAUSEA [None]
  - TONGUE BITING [None]
  - DIARRHOEA [None]
  - URINARY INCONTINENCE [None]
  - ABDOMINAL PAIN UPPER [None]
